FAERS Safety Report 5815537-8 (Version None)
Quarter: 2008Q3

REPORT INFORMATION
  Report Type: 
  Country: None (occurrence: None)
  Receive Date: 20080718
  Receipt Date: 20080711
  Transmission Date: 20090109
  Serious: Yes (Life-Threatening, Hospitalization)
  Sender: FDA-Public Use
  Company Number: NO-GENENTECH-264299

PATIENT
  Sex: Male

DRUGS (3)
  1. LUCENTIS [Suspect]
     Indication: MACULAR DEGENERATION
     Dosage: 0.5 MG, X2
     Dates: start: 20080220
  2. AVASTIN [Suspect]
     Indication: MACULAR DEGENERATION
     Dosage: UNK
     Dates: start: 20060712
  3. INSULIN [Concomitant]
     Indication: DRUG USE FOR UNKNOWN INDICATION

REACTIONS (3)
  - CEREBRAL INFARCTION [None]
  - DRUG INTERACTION [None]
  - MYOCARDIAL INFARCTION [None]
